FAERS Safety Report 24138724 (Version 2)
Quarter: 2024Q3

REPORT INFORMATION
  Report Type: Report from Study
  Country: US (occurrence: US)
  Receive Date: 20240725
  Receipt Date: 20240917
  Transmission Date: 20241016
  Serious: Yes (Other)
  Sender: ABBVIE
  Company Number: US-ABBVIE-5849339

PATIENT
  Sex: Male
  Weight: 80 kg

DRUGS (3)
  1. SKYRIZI [Suspect]
     Active Substance: RISANKIZUMAB-RZAA
     Indication: Psoriasis
     Dosage: DOSAGE: 150 MG/ML STRENGTH- 150 MG/ML?WEEK 0
     Route: 058
     Dates: start: 20240214, end: 20240214
  2. SKYRIZI [Suspect]
     Active Substance: RISANKIZUMAB-RZAA
     Dosage: DOSAGE: 150 MG/ML STRENGTH- 150 MG/ML?WEEK 4
     Route: 058
     Dates: start: 20240314, end: 20240314
  3. SKYRIZI [Suspect]
     Active Substance: RISANKIZUMAB-RZAA
     Dosage: DOSAGE: 150 MG/ML STRENGTH- 150 MG/ML?WEEK 12
     Route: 058
     Dates: start: 202406

REACTIONS (5)
  - Foot deformity [Unknown]
  - Post procedural infection [Recovered/Resolved]
  - Injection site haemorrhage [Unknown]
  - Therapeutic product effect incomplete [Not Recovered/Not Resolved]
  - Wound dehiscence [Unknown]

NARRATIVE: CASE EVENT DATE: 20240101
